FAERS Safety Report 11184001 (Version 1)
Quarter: 2015Q2

REPORT INFORMATION
  Report Type: Report from Study
  Country: PL (occurrence: PL)
  Receive Date: 20150612
  Receipt Date: 20150612
  Transmission Date: 20150821
  Serious: Yes (Life-Threatening)
  Sender: FDA-Public Use
  Company Number: PL-009507513-1506POL002818

PATIENT

DRUGS (5)
  1. INTRON A [Suspect]
     Active Substance: INTERFERON ALFA-2B
     Dosage: 6 MILLION IU, THICE WEEKLY, ADMINISTERED IN THE EVENING
     Route: 058
  2. ENDOXAN [Suspect]
     Active Substance: CYCLOPHOSPHAMIDE
     Indication: RENAL CANCER METASTATIC
     Dosage: 50 MG, FROM DAY 2, EVERY MORNING
     Route: 048
  3. INTRON A [Suspect]
     Active Substance: INTERFERON ALFA-2B
     Dosage: 9 MILLION IU, THICE WEEKLY, ADMINISTERED IN THE EVENING
     Route: 058
  4. ACETAMINOPHEN. [Concomitant]
     Active Substance: ACETAMINOPHEN
     Dosage: EACH INJECTION OF INF PRECEDED BY 1 GRAM OF PARACETAMOL
     Route: 048
  5. INTRON A [Suspect]
     Active Substance: INTERFERON ALFA-2B
     Indication: RENAL CANCER METASTATIC
     Dosage: 3 MILLION IU, THRICE WEEKLY, ADMINISTERED IN THE EVENING
     Route: 058

REACTIONS (1)
  - Lymphopenia [Unknown]
